FAERS Safety Report 9401045 (Version 3)
Quarter: 2013Q4

REPORT INFORMATION
  Report Type: Spontaneous
  Country: US (occurrence: US)
  Receive Date: 20130715
  Receipt Date: 20131009
  Transmission Date: 20140711
  Serious: Yes (Hospitalization)
  Sender: FDA-Public Use
  Company Number: US-VIROPHARMA INCORPORATED-20130116CINRY3853

PATIENT
  Age: 18 Year
  Sex: Female

DRUGS (3)
  1. CINRYZE (C1 ESTERASE INHIBITOR (HUMAN)) [Suspect]
     Indication: HEREDITARY ANGIOEDEMA
     Dates: start: 20120404
  2. CINRYZE (C1 ESTERASE INHIBITOR (HUMAN)) [Suspect]
     Indication: PROPHYLAXIS
  3. PRENATAL VITAMINS [Concomitant]
     Indication: PREGNANCY
     Dosage: UNKNOWN
     Route: 048

REACTIONS (2)
  - Dehydration [Unknown]
  - Exposure during pregnancy [Recovered/Resolved]
